FAERS Safety Report 22197435 (Version 1)
Quarter: 2023Q2

REPORT INFORMATION
  Report Type: Spontaneous
  Country: US (occurrence: US)
  Receive Date: 20230411
  Receipt Date: 20230411
  Transmission Date: 20230721
  Serious: Yes (Life-Threatening, Hospitalization)
  Sender: FDA-Public Use
  Company Number: US-BRISTOL-MYERS SQUIBB COMPANY-2023-050370

PATIENT
  Age: 64 Year
  Sex: Male

DRUGS (1)
  1. INREBIC [Suspect]
     Active Substance: FEDRATINIB HYDROCHLORIDE
     Indication: Product used for unknown indication
     Dosage: DOSE : 3 CAPSULES;     FREQ : DAILY?STRENGTH AND PRESENTATION OF THE AE : 100MG CAPSULES
     Route: 048

REACTIONS (1)
  - Hospitalisation [Unknown]
